FAERS Safety Report 5557453-5 (Version None)
Quarter: 2007Q4

REPORT INFORMATION
  Report Type: 
  Country: None (occurrence: None)
  Receive Date: 20071214
  Receipt Date: 20041201
  Transmission Date: 20080405
  Serious: Yes (Other)
  Sender: FDA-Public Use
  Company Number: FR-JNJFOC-20071104600

PATIENT
  Age: 32 Year
  Sex: Male
  Weight: 88 kg

DRUGS (1)
  1. HALOPERIDOL [Suspect]
     Indication: AUTISM
     Route: 048

REACTIONS (1)
  - WEIGHT INCREASED [None]
